FAERS Safety Report 11312498 (Version 1)
Quarter: 2015Q3

REPORT INFORMATION
  Report Type: Spontaneous
  Country: US (occurrence: None)
  Receive Date: 20150724
  Receipt Date: 20150724
  Transmission Date: 20151125
  Serious: No
  Sender: FDA-Public Use
  Company Number: None

PATIENT
  Sex: Female

DRUGS (11)
  1. FISH OIL [Concomitant]
     Active Substance: FISH OIL
  2. PAXIL [Concomitant]
     Active Substance: PAROXETINE HYDROCHLORIDE
  3. AMTRIPTYLIN [Concomitant]
  4. HCTZ [Concomitant]
     Active Substance: HYDROCHLOROTHIAZIDE
  5. VICODIN [Concomitant]
     Active Substance: ACETAMINOPHEN\HYDROCODONE BITARTRATE
  6. IRON [Concomitant]
     Active Substance: IRON
  7. SIMPONI [Suspect]
     Active Substance: GOLIMUMAB
     Indication: RHEUMATOID ARTHRITIS
     Dosage: UNDER THE SKIN
     Dates: start: 20130517
  8. BUSPIRON [Concomitant]
     Active Substance: BUSPIRONE HYDROCHLORIDE
  9. METHOTREXATE [Concomitant]
     Active Substance: METHOTREXATE
  10. VITAMIN D [Concomitant]
     Active Substance: CHOLECALCIFEROL
  11. MULTIVITAMIN [Concomitant]
     Active Substance: VITAMINS

REACTIONS (2)
  - Condition aggravated [None]
  - Arthropathy [None]
